FAERS Safety Report 6256241-4 (Version None)
Quarter: 2009Q3

REPORT INFORMATION
  Report Type: 
  Country: None (occurrence: None)
  Receive Date: 20090706
  Receipt Date: 20090331
  Transmission Date: 20100115
  Serious: No
  Sender: FDA-Public Use
  Company Number: A0776419A

PATIENT
  Age: 8 Year
  Sex: Male

DRUGS (6)
  1. ADVAIR HFA [Suspect]
     Indication: CYSTIC FIBROSIS
     Dosage: 2PUFF TWICE PER DAY
     Route: 055
     Dates: start: 20080601, end: 20090330
  2. FLOVENT [Suspect]
     Dosage: 1SPR FOUR TIMES PER DAY
     Route: 055
     Dates: start: 20090317
  3. XOPENEX [Concomitant]
  4. TOBRAMYCIN [Concomitant]
     Route: 055
  5. PULMOZYME [Concomitant]
     Route: 055
  6. PREVACID [Concomitant]

REACTIONS (2)
  - DIZZINESS [None]
  - OROPHARYNGEAL PAIN [None]
